FAERS Safety Report 10428626 (Version 3)
Quarter: 2014Q3

REPORT INFORMATION
  Report Type: Report from Study
  Country: DE (occurrence: DE)
  Receive Date: 20140903
  Receipt Date: 20140915
  Transmission Date: 20150326
  Serious: Yes (Hospitalization, Congenital Anomaly, Other)
  Sender: FDA-Public Use
  Company Number: DE-PFIZER INC-2014245314

PATIENT

DRUGS (3)
  1. NICOTINE. [Suspect]
     Active Substance: NICOTINE
     Dosage: UNK
     Route: 064
  2. IBUPROFEN. [Suspect]
     Active Substance: IBUPROFEN
     Dosage: UNK
     Route: 064
  3. MOXIFLOXACIN [Suspect]
     Active Substance: MOXIFLOXACIN
     Dosage: UNK
     Route: 064

REACTIONS (3)
  - Cleft lip and palate [Unknown]
  - Premature baby [Unknown]
  - Maternal exposure during pregnancy [Unknown]
